FAERS Safety Report 6283026-5 (Version None)
Quarter: 2009Q3

REPORT INFORMATION
  Report Type: 
  Country: None (occurrence: None)
  Receive Date: 20090724
  Receipt Date: 20090721
  Transmission Date: 20100115
  Serious: Yes (Hospitalization)
  Sender: FDA-Public Use
  Company Number: US-BRISTOL-MYERS SQUIBB COMPANY-14709968

PATIENT
  Age: 63 Year
  Sex: Female

DRUGS (13)
  1. ARIPIPRAZOLE [Suspect]
     Indication: BIPOLAR DISORDER
     Route: 048
  2. DEPAKOTE ER [Suspect]
     Indication: BIPOLAR DISORDER
     Dosage: 1 DF= 500 MG QAM AND 1000MG QHS
     Route: 048
     Dates: start: 20000101
  3. RISPERIDONE [Concomitant]
     Indication: BIPOLAR DISORDER
     Route: 048
  4. ZOLPIDEM [Concomitant]
     Indication: INSOMNIA
     Route: 048
  5. FOLIC ACID [Concomitant]
     Indication: MEDICAL DIET
     Route: 048
  6. ACETYLSALICYLIC ACID [Concomitant]
     Route: 048
  7. FERROUS SULFATE TAB [Concomitant]
     Route: 048
  8. FLUTICASONE PROPIONATE [Concomitant]
     Route: 055
  9. LORATADINE [Concomitant]
     Route: 048
  10. SALMETEROL [Concomitant]
     Route: 065
  11. MONTELUKAST [Concomitant]
     Route: 065
  12. SIMVASTATIN [Concomitant]
     Route: 048
  13. VIGRAN [Concomitant]
     Indication: MEDICAL DIET
     Route: 048

REACTIONS (5)
  - AMMONIA INCREASED [None]
  - DEPRESSION [None]
  - INTENTIONAL OVERDOSE [None]
  - LIPASE INCREASED [None]
  - SUICIDAL BEHAVIOUR [None]
